APPROVED DRUG PRODUCT: KAPVAY
Active Ingredient: CLONIDINE HYDROCHLORIDE
Strength: 0.2MG **Federal Register determination that product was not discontinued or withdrawn for safety or effectiveness reasons**
Dosage Form/Route: TABLET, EXTENDED RELEASE;ORAL
Application: N022331 | Product #004
Applicant: CONCORDIA PHARMACEUTICALS INC
Approved: Sep 28, 2010 | RLD: Yes | RS: No | Type: DISCN